FAERS Safety Report 5963307-2 (Version None)
Quarter: 2008Q4

REPORT INFORMATION
  Report Type: 
  Country: None (occurrence: None)
  Receive Date: 20081124
  Receipt Date: 20081117
  Transmission Date: 20090506
  Serious: Yes (Death)
  Sender: FDA-Public Use
  Company Number: A0662594A

PATIENT
  Age: 52 Year
  Sex: Male

DRUGS (10)
  1. AVANDAMET [Suspect]
     Indication: DIABETES MELLITUS
     Route: 048
  2. AVANDIA [Suspect]
     Dosage: 4MG TWICE PER DAY
     Route: 048
  3. GLUCOTROL XL [Concomitant]
     Dates: end: 20050101
  4. LIPITOR [Concomitant]
  5. UNIVASC [Concomitant]
  6. GLUCOPHAGE [Concomitant]
     Dates: end: 20050101
  7. HUMULIN [Concomitant]
     Dates: start: 20050101
  8. METFORMIN HCL [Concomitant]
  9. LISINOPRIL [Concomitant]
     Dosage: 20MG PER DAY
  10. ZOCOR [Concomitant]

REACTIONS (3)
  - CORONARY ARTERY DISEASE [None]
  - MYOCARDIAL INFARCTION [None]
  - VENTRICULAR FIBRILLATION [None]
